FAERS Safety Report 7700659-7 (Version None)
Quarter: 2011Q3

REPORT INFORMATION
  Report Type: 
  Country: None (occurrence: None)
  Receive Date: 20110822
  Receipt Date: 20110822
  Transmission Date: 20111222
  Serious: No
  Sender: FDA-Public Use
  Company Number: None

PATIENT
  Age: 68 Year
  Sex: Female
  Weight: 104.32 kg

DRUGS (2)
  1. LEVOFLOXACIN [Concomitant]
     Indication: OSTEOMYELITIS
     Dosage: 1
     Route: 048
     Dates: start: 20110818, end: 20110828
  2. LEVOFLOXACIN [Suspect]
     Indication: OSTEOMYELITIS
     Dosage: 1
     Route: 048
     Dates: start: 20110725, end: 20110805

REACTIONS (4)
  - DISCOMFORT [None]
  - MUSCULOSKELETAL PAIN [None]
  - INSOMNIA [None]
  - PAIN [None]
